FAERS Safety Report 5124201-2 (Version None)
Quarter: 2006Q4

REPORT INFORMATION
  Report Type: 
  Country: None (occurrence: None)
  Receive Date: 20061010
  Receipt Date: 20061003
  Transmission Date: 20070319
  Serious: No
  Sender: FDA-Public Use
  Company Number: 2006AP04575

PATIENT
  Sex: Female

DRUGS (3)
  1. SEROQUEL [Suspect]
     Route: 048
  2. EDRONAX [Suspect]
     Route: 048
  3. EDRONAX [Suspect]
     Route: 048

REACTIONS (1)
  - NEUTROPENIA [None]
